FAERS Safety Report 17269117 (Version 1)
Quarter: 2020Q1

REPORT INFORMATION
  Report Type: Spontaneous
  Country: US (occurrence: US)
  Receive Date: 20200114
  Receipt Date: 20200114
  Transmission Date: 20200409
  Serious: Yes (Death, Hospitalization)
  Sender: FDA-Public Use
  Company Number: US-PFIZER INC-2020013775

PATIENT
  Age: 23 Year
  Sex: Female

DRUGS (21)
  1. LIRAGLUTIDE [Suspect]
     Active Substance: LIRAGLUTIDE
     Dosage: UNK, (ASPIRATION (WITH INGESTION))
     Route: 048
  2. LIRAGLUTIDE [Suspect]
     Active Substance: LIRAGLUTIDE
     Dosage: UNK, (PARENTERAL)
     Route: 051
  3. ALPRAZOLAM. [Suspect]
     Active Substance: ALPRAZOLAM
     Dosage: UNK
     Route: 051
  4. INSULIN ASPART [Suspect]
     Active Substance: INSULIN ASPART
     Dosage: UNK, (PARENTERAL)
     Route: 051
  5. LIRAGLUTIDE [Suspect]
     Active Substance: LIRAGLUTIDE
     Dosage: UNK, (INGESTION)
     Route: 048
  6. BUPROPION HCL ER [Suspect]
     Active Substance: BUPROPION HYDROCHLORIDE
     Dosage: UNK, (INGESTION)
     Route: 048
  7. BUPROPION HCL ER [Suspect]
     Active Substance: BUPROPION HYDROCHLORIDE
     Dosage: UNK, (ASPIRATION (WITH INGESTION))
     Route: 048
  8. BUPROPION HCL ER [Suspect]
     Active Substance: BUPROPION HYDROCHLORIDE
     Dosage: UNK, (PARENTERAL)
     Route: 051
  9. METFORMIN [Suspect]
     Active Substance: METFORMIN HYDROCHLORIDE
     Dosage: UNK, (PARENTERAL)
     Route: 051
  10. CYCLOBENZAPRINE. [Suspect]
     Active Substance: CYCLOBENZAPRINE
     Dosage: UNK, (PARENTERAL)
     Route: 051
  11. METFORMIN [Suspect]
     Active Substance: METFORMIN HYDROCHLORIDE
     Dosage: UNK, (INGESTION)
     Route: 048
  12. METFORMIN [Suspect]
     Active Substance: METFORMIN HYDROCHLORIDE
     Dosage: UNK, (ASPIRATION (WITH INGESTION))
     Route: 048
  13. ALPRAZOLAM. [Suspect]
     Active Substance: ALPRAZOLAM
     Dosage: UNK, (ASPIRATION (WITH INGESTION))
     Route: 048
  14. CYCLOBENZAPRINE. [Suspect]
     Active Substance: CYCLOBENZAPRINE
     Dosage: UNK, (ASPIRATION (WITH INGESTION))
     Route: 048
  15. ALPRAZOLAM. [Suspect]
     Active Substance: ALPRAZOLAM
     Dosage: UNK, (INGESTION)
     Route: 048
  16. FLUOXETINE [Suspect]
     Active Substance: FLUOXETINE HYDROCHLORIDE
     Dosage: UNK, (INGESTION)
     Route: 048
  17. FLUOXETINE [Suspect]
     Active Substance: FLUOXETINE HYDROCHLORIDE
     Dosage: UNK, (ASPIRATION (WITH INGESTION))
     Route: 048
  18. FLUOXETINE [Suspect]
     Active Substance: FLUOXETINE HYDROCHLORIDE
     Dosage: UNK, (PARENTERAL)
     Route: 051
  19. INSULIN ASPART [Suspect]
     Active Substance: INSULIN ASPART
     Dosage: UNK, (INGESTION)
     Route: 048
  20. CYCLOBENZAPRINE. [Suspect]
     Active Substance: CYCLOBENZAPRINE
     Dosage: UNK, (INGESTION)
     Route: 048
  21. INSULIN ASPART [Suspect]
     Active Substance: INSULIN ASPART
     Dosage: UNK, (ASPIRATION (WITH INGESTION))
     Route: 048

REACTIONS (1)
  - Completed suicide [Fatal]

NARRATIVE: CASE EVENT DATE: 2018
